FAERS Safety Report 23530604 (Version 1)
Quarter: 2024Q1

REPORT INFORMATION
  Report Type: Other
  Country: GB (occurrence: GB)
  Receive Date: 20240216
  Receipt Date: 20240216
  Transmission Date: 20240409
  Serious: Yes (Life-Threatening)
  Sender: FDA-Public Use
  Company Number: GB-MACLEODS PHARMA EU LTD-MAC2024045862

PATIENT

DRUGS (1)
  1. ARIPIPRAZOLE [Suspect]
     Active Substance: ARIPIPRAZOLE
     Indication: Psychotic disorder
     Dosage: UNK (VARIOUS, START DATE  IN 2011,END IN 2023)
     Route: 065

REACTIONS (5)
  - Illness [Not Recovered/Not Resolved]
  - Hypersexuality [Recovering/Resolving]
  - Suicidal ideation [Not Recovered/Not Resolved]
  - Gambling disorder [Not Recovered/Not Resolved]
  - Medication error [Unknown]
